FAERS Safety Report 20887291 (Version 4)
Quarter: 2022Q4

REPORT INFORMATION
  Report Type: Report from Study
  Country: EG (occurrence: EG)
  Receive Date: 20220528
  Receipt Date: 20221020
  Transmission Date: 20230112
  Serious: Yes (Other)
  Sender: FDA-Public Use
  Company Number: EG-NOVARTISPH-NVSC2022EG118069

PATIENT
  Age: 61 Year
  Sex: Female

DRUGS (12)
  1. GILENYA [Suspect]
     Active Substance: FINGOLIMOD HYDROCHLORIDE
     Indication: Multiple sclerosis
     Dosage: 1 DOSAGE FORM, QD
     Route: 048
     Dates: start: 202204
  2. GILENYA [Suspect]
     Active Substance: FINGOLIMOD HYDROCHLORIDE
     Dosage: 1 DOSAGE FORM, QD
     Route: 048
     Dates: start: 202204
  3. VITAMIN D3 [Concomitant]
     Active Substance: CHOLECALCIFEROL
     Indication: Vitamin supplementation
     Dosage: 0.5 MG, QD
     Route: 048
     Dates: start: 2010
  4. CRESTOR [Concomitant]
     Active Substance: ROSUVASTATIN CALCIUM
     Indication: Blood cholesterol abnormal
     Dosage: 1 DOSAGE FORM, QD
     Route: 048
     Dates: start: 2017
  5. CRESTOR [Concomitant]
     Active Substance: ROSUVASTATIN CALCIUM
     Indication: Hypercholesterolaemia
     Dosage: 1 DOSAGE FORM, QD
     Route: 048
     Dates: start: 2018
  6. IRON [Concomitant]
     Active Substance: IRON
     Indication: Anaemia prophylaxis
     Dosage: 1 DOSAGE FORM, QD
     Route: 065
     Dates: start: 2010
  7. VITAMIN B12 [Concomitant]
     Active Substance: CYANOCOBALAMIN
     Indication: Neuralgia
     Dosage: ONE TAB PER DAY
     Route: 048
     Dates: start: 2020
  8. VITAMIN B12 [Concomitant]
     Active Substance: CYANOCOBALAMIN
     Dosage: ONE AMP PER WEEK
     Route: 030
     Dates: start: 2020
  9. CELEBREX [Concomitant]
     Active Substance: CELECOXIB
     Indication: Arthralgia
     Dosage: 1 DOSAGE FORM, QD
     Route: 048
  10. ANTI-COX II [Concomitant]
     Indication: Arthralgia
     Dosage: 1 DOSAGE FORM, QD
     Route: 048
     Dates: start: 202204
  11. VITA B [Concomitant]
     Indication: Supplementation therapy
     Dosage: ONE YEAR AND HALF, ONCE OR TWICE PER WEEK
     Route: 065
  12. VITAMIN D NOS [Concomitant]
     Active Substance: VITAMIN D NOS
     Indication: Supplementation therapy
     Dosage: 1 DOSAGE FORM, QD
     Route: 065
     Dates: start: 2014

REACTIONS (12)
  - Musculoskeletal disorder [Not Recovered/Not Resolved]
  - Gait disturbance [Not Recovered/Not Resolved]
  - Hypoaesthesia [Not Recovered/Not Resolved]
  - Sciatic nerve neuropathy [Unknown]
  - Spinal disorder [Unknown]
  - Movement disorder [Unknown]
  - Back pain [Not Recovered/Not Resolved]
  - Hypotension [Not Recovered/Not Resolved]
  - Dizziness [Not Recovered/Not Resolved]
  - Hypochromic anaemia [Unknown]
  - Anisocytosis [Not Recovered/Not Resolved]
  - White blood cell count decreased [Unknown]

NARRATIVE: CASE EVENT DATE: 20220401
